FAERS Safety Report 8574741 (Version 2)
Quarter: 2012Q4

REPORT INFORMATION
  Report Type: 
  Country: US (occurrence: US)
  Receive Date: 20120522
  Receipt Date: 20121106
  Transmission Date: 20130627
  Serious: No
  Sender: FDA-Public Use
  Company Number: US-ASTRAZENECA-2012SE18356

PATIENT
  Age: 50 Year
  Sex: Female

DRUGS (5)
  1. NEXIUM [Suspect]
     Route: 048
  2. OMEPRAZOLE [Suspect]
     Route: 048
  3. LANSOPRAZOLE [Concomitant]
  4. PANTOPRAZOLE [Concomitant]
  5. ACIPHEX [Concomitant]

REACTIONS (2)
  - Adverse event [Unknown]
  - Drug ineffective [Unknown]
